FAERS Safety Report 11626353 (Version 1)
Quarter: 2015Q4

REPORT INFORMATION
  Report Type: Spontaneous
  Country: US (occurrence: US)
  Receive Date: 20151013
  Receipt Date: 20151013
  Transmission Date: 20160304
  Serious: No
  Sender: FDA-Public Use
  Company Number: US-ROCHE-1469114

PATIENT
  Age: 43 Year
  Sex: Female

DRUGS (8)
  1. ASPIRIN. [Suspect]
     Active Substance: ASPIRIN
     Indication: TRAUMATIC ARTHRITIS
  2. VOLTAREN [Suspect]
     Active Substance: DICLOFENAC SODIUM
     Indication: TRAUMATIC ARTHRITIS
  3. ASPIRIN. [Suspect]
     Active Substance: ASPIRIN
     Indication: TRAUMATIC ARTHRITIS
     Route: 065
  4. ANSAID [Suspect]
     Active Substance: FLURBIPROFEN
     Indication: TRAUMATIC ARTHRITIS
  5. NAPROSYN [Suspect]
     Active Substance: NAPROXEN
     Indication: TRAUMATIC ARTHRITIS
  6. VOLTAREN [Suspect]
     Active Substance: DICLOFENAC SODIUM
     Indication: TRAUMATIC ARTHRITIS
     Route: 065
  7. ANSAID [Suspect]
     Active Substance: FLURBIPROFEN
     Indication: TRAUMATIC ARTHRITIS
     Route: 065
  8. NAPROSYN [Suspect]
     Active Substance: NAPROXEN
     Indication: TRAUMATIC ARTHRITIS
     Route: 065

REACTIONS (1)
  - Urticaria [Unknown]
